FAERS Safety Report 8601299-8 (Version None)
Quarter: 2012Q3

REPORT INFORMATION
  Report Type: 
  Country: None (occurrence: None)
  Receive Date: 20120817
  Receipt Date: 20120813
  Transmission Date: 20120928
  Serious: Yes (Death)
  Sender: FDA-Public Use
  Company Number: AU-JNJFOC-20120807159

PATIENT
  Age: 65 Year
  Sex: Female

DRUGS (3)
  1. REOPRO [Suspect]
     Indication: CEREBROVASCULAR ACCIDENT
     Route: 065
     Dates: start: 20120701
  2. REOPRO [Suspect]
     Indication: CAROTID ARTERY STENT INSERTION
     Route: 065
     Dates: start: 20120701
  3. HEPARIN [Concomitant]
     Dosage: 7500 UNITS
     Route: 065
     Dates: start: 20120701

REACTIONS (2)
  - OFF LABEL USE [None]
  - HAEMORRHAGE INTRACRANIAL [None]
